FAERS Safety Report 7681270-3 (Version None)
Quarter: 2011Q3

REPORT INFORMATION
  Report Type: 
  Country: None (occurrence: None)
  Receive Date: 20110809
  Receipt Date: 20110803
  Transmission Date: 20111222
  Serious: Yes (Hospitalization)
  Sender: FDA-Public Use
  Company Number: WAES 0912USA02776

PATIENT
  Age: 68 Year
  Sex: Male

DRUGS (5)
  1. PLACEBO [Suspect]
     Indication: THROMBOSIS PROPHYLAXIS
     Dates: start: 20090909, end: 20090101
  2. PRINIVIL [Suspect]
     Indication: PRODUCT USED FOR UNKNOWN INDICATION
     Dosage: PO
     Route: 048
     Dates: start: 20070101, end: 20091123
  3. ENOXAPARIN SODIUM [Suspect]
     Indication: THROMBOSIS PROPHYLAXIS
     Dosage: 40 MG/DAILY/SC
     Route: 058
     Dates: start: 20090909, end: 20090915
  4. ADVAIR DISKUS 100/50 [Concomitant]
  5. METFFORMIN HYDROCHLORIDE [Concomitant]

REACTIONS (5)
  - SWOLLEN TONGUE [None]
  - DYSARTHRIA [None]
  - DYSPHAGIA [None]
  - HAEMOGLOBIN DECREASED [None]
  - PALATAL OEDEMA [None]
